FAERS Safety Report 13701464 (Version 1)
Quarter: 2017Q2

REPORT INFORMATION
  Report Type: Spontaneous
  Country: US (occurrence: US)
  Receive Date: 20170628
  Receipt Date: 20170628
  Transmission Date: 20170830
  Serious: Yes (Other)
  Sender: FDA-Public Use
  Company Number: None

PATIENT
  Age: 34 Year
  Sex: Female
  Weight: 119.2 kg

DRUGS (10)
  1. TOPAMAX [Concomitant]
     Active Substance: TOPIRAMATE
  2. OMEPRAZOLE. [Concomitant]
     Active Substance: OMEPRAZOLE
  3. ZENCHENT [Concomitant]
     Active Substance: ETHINYL ESTRADIOL\NORETHINDRONE
  4. BARIATRIC VITAMINS [Concomitant]
  5. UROCIT-K [Concomitant]
     Active Substance: POTASSIUM CITRATE
  6. PROZAC [Concomitant]
     Active Substance: FLUOXETINE HYDROCHLORIDE
  7. ZYRTEK [Concomitant]
     Active Substance: CETIRIZINE HYDROCHLORIDE
  8. ETOMIDATE. [Suspect]
     Active Substance: ETOMIDATE
     Indication: ENDOSCOPY
     Dosage: OTHER FREQUENCY:AT PROCEDURE TIME;?
     Route: 042
     Dates: start: 20170626, end: 20170626
  9. ETOMIDATE. [Suspect]
     Active Substance: ETOMIDATE
     Indication: ANAESTHESIA
     Dosage: OTHER FREQUENCY:AT PROCEDURE TIME;?
     Route: 042
     Dates: start: 20170626, end: 20170626
  10. METFORMIN [Concomitant]
     Active Substance: METFORMIN HYDROCHLORIDE

REACTIONS (10)
  - Migraine [None]
  - Dyskinesia [None]
  - Swelling face [None]
  - Infusion site extravasation [None]
  - Headache [None]
  - Infusion site erythema [None]
  - Hypersensitivity [None]
  - Infusion site pain [None]
  - Lip swelling [None]
  - Unevaluable event [None]

NARRATIVE: CASE EVENT DATE: 20170626
